FAERS Safety Report 8365872-7 (Version None)
Quarter: 2012Q2

REPORT INFORMATION
  Report Type: 
  Country: None (occurrence: None)
  Receive Date: 20120515
  Receipt Date: 20120504
  Transmission Date: 20120825
  Serious: Yes (Hospitalization)
  Sender: FDA-Public Use
  Company Number: 2012MA005973

PATIENT
  Age: 16 Year
  Sex: Male

DRUGS (2)
  1. FEVERALL [Suspect]
     Indication: CONDITION AGGRAVATED
     Dosage: 500 MG;X1;IV
     Route: 042
     Dates: start: 20120321, end: 20120321
  2. FEVERALL [Suspect]
     Indication: HEADACHE
     Dosage: 500 MG;X1;IV
     Route: 042
     Dates: start: 20120321, end: 20120321

REACTIONS (4)
  - FACE OEDEMA [None]
  - URTICARIA [None]
  - HYPERAEMIA [None]
  - OEDEMA PERIPHERAL [None]
